FAERS Safety Report 9962149 (Version 1)
Quarter: 2014Q1

REPORT INFORMATION
  Report Type: Report from Study
  Country: US (occurrence: US)
  Receive Date: 20140305
  Receipt Date: 20140305
  Transmission Date: 20141002
  Serious: Yes (Hospitalization)
  Sender: FDA-Public Use
  Company Number: US-ABBVIE-13P-163-1110141-00

PATIENT
  Age: 36 Year
  Sex: Male
  Weight: 65.38 kg

DRUGS (3)
  1. HUMIRA [Suspect]
     Indication: CROHN^S DISEASE
     Dates: start: 201208, end: 201208
  2. HUMIRA [Suspect]
     Dosage: TWO WEEKS AFTER 160 MG DOSE
     Dates: start: 2012, end: 2012
  3. HUMIRA [Suspect]
     Dosage: FOUR WEEKS AFTER 160 MG DOSE
     Dates: start: 2012, end: 2012

REACTIONS (4)
  - Crohn^s disease [Recovering/Resolving]
  - Rash [Recovered/Resolved]
  - Drug ineffective [Not Recovered/Not Resolved]
  - Post procedural infection [Not Recovered/Not Resolved]
